FAERS Safety Report 4795154-1 (Version None)
Quarter: 2005Q4

REPORT INFORMATION
  Report Type: 
  Country: None (occurrence: None)
  Receive Date: 20051006
  Receipt Date: 20051006
  Transmission Date: 20060501
  Serious: No
  Sender: FDA-Public Use
  Company Number: None

PATIENT
  Sex: Female
  Weight: 64.8644 kg

DRUGS (3)
  1. LASIX [Suspect]
     Indication: CARDIAC FAILURE CONGESTIVE
     Dosage: 40 MG [YEARS]
  2. LASIX [Suspect]
     Indication: DYSPNOEA
     Dosage: 40 MG [YEARS]
  3. LASIX [Suspect]
     Indication: OEDEMA
     Dosage: 40 MG [YEARS]

REACTIONS (3)
  - CARDIAC FAILURE CONGESTIVE [None]
  - CONDITION AGGRAVATED [None]
  - OEDEMA [None]
